FAERS Safety Report 26023381 (Version 2)
Quarter: 2025Q4

REPORT INFORMATION
  Report Type: Spontaneous
  Country: JP (occurrence: JP)
  Receive Date: 20251110
  Receipt Date: 20251119
  Transmission Date: 20260118
  Serious: Yes (Hospitalization, Other)
  Sender: AMGEN
  Company Number: JP-AMGEN-JPNSP2025171898

PATIENT
  Age: 7 Decade
  Sex: Male

DRUGS (5)
  1. IMDELLTRA [Suspect]
     Active Substance: TARLATAMAB-DLLE
     Indication: Small cell lung cancer
     Dosage: 1 MILLIGRAM, DRIP INFUSION
     Route: 040
     Dates: start: 20250703, end: 20250703
  2. IMDELLTRA [Suspect]
     Active Substance: TARLATAMAB-DLLE
     Dosage: 10 MILLIGRAM, DRIP INFUSION
     Route: 040
     Dates: start: 20250710, end: 20250815
  3. DECADRON [Concomitant]
     Active Substance: DEXAMETHASONE
     Indication: Metastases to central nervous system
     Dosage: 6.6 MILLIGRAM
     Dates: start: 20250816, end: 20250816
  4. DECADRON [Concomitant]
     Active Substance: DEXAMETHASONE
     Indication: Cytokine release syndrome
  5. DECADRON [Concomitant]
     Active Substance: DEXAMETHASONE
     Indication: Pyrexia

REACTIONS (5)
  - Cytokine release syndrome [Recovered/Resolved]
  - Pyrexia [Recovered/Resolved]
  - Hypotension [Recovered/Resolved]
  - Haemophagocytic lymphohistiocytosis [Recovered/Resolved]
  - Small cell lung cancer [Unknown]

NARRATIVE: CASE EVENT DATE: 20250101
